FAERS Safety Report 4391055-1 (Version None)
Quarter: 2004Q3

REPORT INFORMATION
  Report Type: 
  Country: None (occurrence: None)
  Receive Date: 20040702
  Receipt Date: 20040702
  Transmission Date: 20050211
  Serious: No
  Sender: FDA-Public Use
  Company Number: None

PATIENT
  Sex: Female

DRUGS (2)
  1. KEFLEX [Suspect]
     Indication: INFECTION
     Dosage: ONE DOSE PO TID X 10 DAYS
     Route: 048
  2. KEFLEX [Suspect]
     Indication: TOOTH DISORDER
     Dosage: ONE DOSE PO TID X 10 DAYS
     Route: 048

REACTIONS (2)
  - DRUG INEFFECTIVE [None]
  - PHARMACEUTICAL PRODUCT COMPLAINT [None]
